FAERS Safety Report 9178524 (Version 2)
Quarter: 2013Q2

REPORT INFORMATION
  Report Type: Report from Study
  Country: BR (occurrence: BR)
  Receive Date: 20130321
  Receipt Date: 20130626
  Transmission Date: 20140414
  Serious: Yes (Other)
  Sender: FDA-Public Use
  Company Number: BR-ROCHE-1200670

PATIENT
  Sex: Male
  Weight: 78 kg

DRUGS (5)
  1. PEG-INTERFERON ALFA 2A [Suspect]
     Indication: HEPATITIS C
     Route: 065
     Dates: start: 20121108
  2. RIBAVIRIN [Suspect]
     Indication: HEPATITIS C
     Dosage: 3 TAB IN MORNING AND 2 AT NIGHT
     Route: 065
     Dates: start: 20121108
  3. DIPYRONE [Concomitant]
     Route: 065
  4. OMEPRAZOLE [Concomitant]
     Route: 065
  5. VITAMIN B12 [Concomitant]

REACTIONS (13)
  - Depression [Not Recovered/Not Resolved]
  - Therapy responder [Unknown]
  - Pain [Not Recovered/Not Resolved]
  - Alopecia [Not Recovered/Not Resolved]
  - Insomnia [Not Recovered/Not Resolved]
  - Hyperhidrosis [Not Recovered/Not Resolved]
  - Nervousness [Not Recovered/Not Resolved]
  - Anxiety [Unknown]
  - Insomnia [Not Recovered/Not Resolved]
  - Mood altered [Not Recovered/Not Resolved]
  - Renal colic [Not Recovered/Not Resolved]
  - Dry mouth [Not Recovered/Not Resolved]
  - Plicated tongue [Not Recovered/Not Resolved]
